FAERS Safety Report 19889602 (Version 1)
Quarter: 2021Q3

REPORT INFORMATION
  Report Type: Spontaneous
  Country: US (occurrence: US)
  Receive Date: 20210927
  Receipt Date: 20210927
  Transmission Date: 20211014
  Serious: Yes (Other)
  Sender: FDA-Public Use
  Company Number: US-PFIZER INC-202101064292

PATIENT
  Age: 83 Year
  Sex: Female

DRUGS (1)
  1. IBRANCE [Suspect]
     Active Substance: PALBOCICLIB
     Indication: OVARIAN CANCER
     Dosage: 125 MG, CYCLIC (THREE WEEKS, ONE WEEK OFF)

REACTIONS (7)
  - Asthenia [Unknown]
  - Somnolence [Unknown]
  - Parosmia [Unknown]
  - Gait disturbance [Unknown]
  - Off label use [Unknown]
  - Neuropathy peripheral [Unknown]
  - Fatigue [Unknown]
